FAERS Safety Report 15387680 (Version 2)
Quarter: 2019Q1

REPORT INFORMATION
  Report Type: Spontaneous
  Country: US (occurrence: US)
  Receive Date: 20180914
  Receipt Date: 20190227
  Transmission Date: 20190417
  Serious: No
  Sender: FDA-Public Use
  Company Number: US-VIFOR (INTERNATIONAL) INC.-VIT-2018-09043

PATIENT
  Sex: Female

DRUGS (14)
  1. PLAVIX [Concomitant]
     Active Substance: CLOPIDOGREL BISULFATE
  2. NORVASC [Concomitant]
     Active Substance: AMLODIPINE BESYLATE
  3. CENTRUM ADULTS [Concomitant]
  4. VELTASSA [Suspect]
     Active Substance: PATIROMER
     Indication: HYPERKALAEMIA
     Route: 048
     Dates: start: 20180606
  5. TOPROL XL [Concomitant]
     Active Substance: METOPROLOL SUCCINATE
  6. ASPIRIN. [Concomitant]
     Active Substance: ASPIRIN
  7. ALLOPURINOL. [Concomitant]
     Active Substance: ALLOPURINOL
  8. HUMALOG [Concomitant]
     Active Substance: INSULIN LISPRO
  9. VITAMIN D3 [Concomitant]
     Active Substance: CHOLECALCIFEROL
  10. MYRBETRIQ [Concomitant]
     Active Substance: MIRABEGRON
  11. DEXILANT [Concomitant]
     Active Substance: DEXLANSOPRAZOLE
  12. FUROSEMIDE. [Concomitant]
     Active Substance: FUROSEMIDE
  13. PRALUENT [Concomitant]
     Active Substance: ALIROCUMAB
  14. DIOVAN [Concomitant]
     Active Substance: VALSARTAN

REACTIONS (4)
  - Malaise [Unknown]
  - Product dose omission [Unknown]
  - Treatment noncompliance [Unknown]
  - Influenza [Unknown]

NARRATIVE: CASE EVENT DATE: 2018
